FAERS Safety Report 10842227 (Version 2)
Quarter: 2015Q2

REPORT INFORMATION
  Report Type: Report from Study
  Country: US (occurrence: US)
  Receive Date: 20150220
  Receipt Date: 20150518
  Transmission Date: 20150821
  Serious: Yes (Death, Other)
  Sender: FDA-Public Use
  Company Number: US-ACTAVIS-2015-03319

PATIENT
  Age: 20 Year
  Sex: Male

DRUGS (9)
  1. MICAFUNGIN [Concomitant]
     Active Substance: MICAFUNGIN
     Dosage: UNK, UNKNOWN
     Route: 065
     Dates: start: 20140608, end: 20140619
  2. MICAFUNGIN [Concomitant]
     Active Substance: MICAFUNGIN
     Indication: INFECTION PROPHYLAXIS
     Dosage: UNK, UNKNOWN
     Route: 065
     Dates: start: 20140620, end: 20140627
  3. MEROPENEM. [Concomitant]
     Active Substance: MEROPENEM
     Indication: SINUSITIS
  4. FILGRASTIM [Suspect]
     Active Substance: FILGRASTIM
     Indication: ACUTE LYMPHOCYTIC LEUKAEMIA
     Dosage: 480 ?G, 1X/DAY (EVERY 24 HOURS)
     Route: 058
     Dates: start: 20140606, end: 20140630
  5. MEROPENEM. [Concomitant]
     Active Substance: MEROPENEM
     Indication: PYREXIA
     Dosage: UNK, UNKNOWN
     Route: 065
     Dates: start: 20140619, end: 20140627
  6. FLUDARABINE PHOSPHATE (ATLLC) [Suspect]
     Active Substance: FLUDARABINE PHOSPHATE
     Indication: ACUTE LYMPHOCYTIC LEUKAEMIA
     Dosage: UNK UNK, UNKNOWN
     Route: 042
     Dates: start: 20140601, end: 20140605
  7. CYTARABINE. [Suspect]
     Active Substance: CYTARABINE
     Indication: ACUTE LYMPHOCYTIC LEUKAEMIA
     Dosage: UNK, UNKNOWN
     Route: 042
     Dates: start: 20140531, end: 20140605
  8. FLUCONAZOLE. [Concomitant]
     Active Substance: FLUCONAZOLE
     Indication: PROPHYLAXIS
     Dosage: UNK, UNKNOWN
     Route: 065
     Dates: start: 20140531, end: 20140608
  9. POSACONAZOLE [Concomitant]
     Active Substance: POSACONAZOLE
     Indication: SINUSITIS
     Dosage: UNK, UNKNOWN
     Route: 048
     Dates: start: 20140622, end: 20140703

REACTIONS (2)
  - Death [Fatal]
  - Fungal rhinitis [Unknown]

NARRATIVE: CASE EVENT DATE: 20140627
